FAERS Safety Report 4456952-7 (Version None)
Quarter: 2004Q3

REPORT INFORMATION
  Report Type: 
  Country: None (occurrence: None)
  Receive Date: 20040921
  Receipt Date: 20040909
  Transmission Date: 20050211
  Serious: Yes (Other)
  Sender: FDA-Public Use
  Company Number: 2002100644JP

PATIENT
  Age: 12 Year
  Sex: Female
  Weight: 28.8 kg

DRUGS (3)
  1. GENOTROPIN [Suspect]
     Indication: RENAL FAILURE CHRONIC
     Dosage: 8.4 MG WEEK SUBCUTANEOUS, 5.3 MG WEEKLY SUBCUTANEOUS
     Route: 058
     Dates: start: 20011012, end: 20010104
  2. PREDNISOLONE [Concomitant]
  3. AZATHIOPRINE [Concomitant]

REACTIONS (4)
  - ARTHRALGIA [None]
  - BLOOD CREATININE INCREASED [None]
  - PERITONEAL DIALYSIS [None]
  - RENAL IMPAIRMENT [None]
